FAERS Safety Report 9757731 (Version 2)
Quarter: 2014Q1

REPORT INFORMATION
  Report Type: Spontaneous
  Country: US (occurrence: US)
  Receive Date: 20131216
  Receipt Date: 20140120
  Transmission Date: 20141002
  Serious: No
  Sender: FDA-Public Use
  Company Number: US-BIOGENIDEC-2013BI115213

PATIENT
  Age: 44 Year
  Sex: Female

DRUGS (2)
  1. AVONEX [Suspect]
     Indication: MULTIPLE SCLEROSIS
     Route: 030
     Dates: start: 20111228, end: 20121112
  2. AVONEX [Suspect]
     Indication: MULTIPLE SCLEROSIS
     Route: 030
     Dates: start: 20130529

REACTIONS (4)
  - Injection site bruising [Recovered/Resolved]
  - Haemorrhage [Recovered/Resolved]
  - Drug administered at inappropriate site [Recovered/Resolved]
  - Injection site pain [Not Recovered/Not Resolved]
